FAERS Safety Report 20375387 (Version 1)
Quarter: 2022Q1

REPORT INFORMATION
  Report Type: Spontaneous
  Country: NL (occurrence: NL)
  Receive Date: 20220125
  Receipt Date: 20220125
  Transmission Date: 20220424
  Serious: Yes (Hospitalization)
  Sender: FDA-Public Use
  Company Number: NL-CELGENE-NLD-20210905132

PATIENT
  Age: 54 Year
  Sex: Male

DRUGS (17)
  1. DEXAMETHASONE [Suspect]
     Active Substance: DEXAMETHASONE
     Indication: Plasma cell myeloma
     Dosage: 40MG
     Route: 065
     Dates: start: 20210807
  2. DEXAMETHASONE [Suspect]
     Active Substance: DEXAMETHASONE
     Indication: Prophylaxis
     Dosage: 40MG,ADDITIONAL INFORMATION:NOT AVAILABLE
     Route: 065
     Dates: start: 20210909, end: 20210911
  3. MELPHALAN [Suspect]
     Active Substance: MELPHALAN
     Indication: Plasma cell myeloma
     Dosage: ADDITIONAL INFORMATION:NOT AVAILABLE
     Route: 065
  4. LENALIDOMIDE [Suspect]
     Active Substance: LENALIDOMIDE
     Indication: Plasma cell myeloma
     Dosage: 25 MILLIGRAM,ADDITIONAL INFORMATION:NOT AVAILABLE
     Route: 048
     Dates: start: 20210909, end: 20210911
  5. CYCLOPHOSPHAMIDE [Suspect]
     Active Substance: CYCLOPHOSPHAMIDE
     Indication: Leukaemia
     Dosage: ADDITIONAL INFORMATION:NOT AVAILABLE
     Route: 065
  6. CYCLOPHOSPHAMIDE [Suspect]
     Active Substance: CYCLOPHOSPHAMIDE
     Indication: Ovarian cancer
  7. CYCLOPHOSPHAMIDE [Suspect]
     Active Substance: CYCLOPHOSPHAMIDE
     Indication: Product used for unknown indication
  8. CARFILZOMIB [Suspect]
     Active Substance: CARFILZOMIB
     Indication: Plasma cell myeloma
     Dosage: 44MG,ADDITIONAL INFORMATION:NOT AVAILABLE
     Route: 058
     Dates: start: 20210909, end: 20210909
  9. CARFILZOMIB [Suspect]
     Active Substance: CARFILZOMIB
     Indication: Plasma cell myeloma
  10. CARFILZOMIB [Suspect]
     Active Substance: CARFILZOMIB
     Indication: Plasma cell myeloma
  11. ISATUXIMAB [Suspect]
     Active Substance: ISATUXIMAB
     Indication: Plasma cell myeloma
     Dosage: 945MG,ADDITIONAL INFORMATION:NOT AVAILABLE
     Route: 048
     Dates: start: 20210909, end: 20210909
  12. CIPROFLOXACIN [Concomitant]
     Active Substance: CIPROFLOXACIN
     Indication: Prophylaxis
     Route: 065
     Dates: start: 20210910, end: 20210913
  13. OXYCODONE [Concomitant]
     Active Substance: OXYCODONE
     Indication: Plasma cell myeloma
     Route: 065
  14. MELOXICAM [Concomitant]
     Active Substance: MELOXICAM
     Indication: Plasma cell myeloma
     Route: 065
     Dates: start: 20210730
  15. VALACYCLOVIR HYDROCHLORIDE [Concomitant]
     Active Substance: VALACYCLOVIR HYDROCHLORIDE
     Indication: Prophylaxis
     Route: 065
     Dates: start: 20210909, end: 20210911
  16. ALLOPURINOL [Concomitant]
     Active Substance: ALLOPURINOL
     Indication: Prophylaxis
     Route: 065
     Dates: start: 20210910, end: 20210913
  17. ACETAMINOPHEN [Concomitant]
     Active Substance: ACETAMINOPHEN
     Indication: Plasma cell myeloma
     Route: 065
     Dates: start: 20210730

REACTIONS (1)
  - Gastric perforation [Recovered/Resolved]

NARRATIVE: CASE EVENT DATE: 20210911
